FAERS Safety Report 23715591 (Version 1)
Quarter: 2024Q2

REPORT INFORMATION
  Report Type: Spontaneous
  Country: US (occurrence: US)
  Receive Date: 20240408
  Receipt Date: 20240408
  Transmission Date: 20240716
  Serious: Yes (Hospitalization, Other)
  Sender: FDA-Public Use
  Company Number: US-BRISTOL-MYERS SQUIBB COMPANY-2024-054638

PATIENT
  Age: 71 Year
  Sex: Male
  Weight: 90.26 kg

DRUGS (1)
  1. REVLIMID [Suspect]
     Active Substance: LENALIDOMIDE
     Indication: Follicular lymphoma stage I
     Dosage: 3 WEEKS ON, 1 WEEK OFF
     Route: 048

REACTIONS (3)
  - Febrile neutropenia [Unknown]
  - White blood cell count decreased [Unknown]
  - Bradycardia [Unknown]
